FAERS Safety Report 10208359 (Version 1)
Quarter: 2014Q2

REPORT INFORMATION
  Report Type: Spontaneous
  Country: JP (occurrence: JP)
  Receive Date: 20140530
  Receipt Date: 20140530
  Transmission Date: 20141212
  Serious: Yes (Hospitalization)
  Sender: FDA-Public Use
  Company Number: JP-SA-2014SA068119

PATIENT
  Age: 28 Year
  Sex: Female

DRUGS (7)
  1. VINCRISTINE [Suspect]
     Indication: NON-HODGKIN^S LYMPHOMA
     Route: 065
  2. PREDNISOLONE [Suspect]
     Indication: NON-HODGKIN^S LYMPHOMA
     Route: 065
  3. METHOTREXATE [Suspect]
     Indication: NON-HODGKIN^S LYMPHOMA
     Route: 065
  4. CYCLOPHOSPHAMIDE [Suspect]
     Indication: NON-HODGKIN^S LYMPHOMA
     Route: 065
  5. FLUDARABINE PHOSPHATE [Suspect]
     Indication: BONE MARROW CONDITIONING REGIMEN
     Route: 065
  6. THERAPEUTIC RADIOPHARMACEUTICALS [Suspect]
     Indication: NON-HODGKIN^S LYMPHOMA
     Dosage: INVOLVED-FIELD RADIOTHERAPY (DOSE: 20 GY) TO THE ANTERIOR MEDIASTINUM
     Route: 065
  7. CYCLOPHOSPHAMIDE [Concomitant]
     Indication: CORD BLOOD TRANSPLANT THERAPY

REACTIONS (10)
  - Myelodysplastic syndrome [Recovered/Resolved]
  - Erythroid series abnormal [Recovered/Resolved]
  - Neutrophil count decreased [Recovered/Resolved]
  - Aplastic anaemia [Recovered/Resolved]
  - Platelet count decreased [Recovered/Resolved]
  - Reticulocyte count decreased [Recovered/Resolved]
  - Takayasu^s arteritis [Recovered/Resolved]
  - Carotid intima-media thickness increased [Recovered/Resolved]
  - Carotid bruit [Recovered/Resolved]
  - Off label use [Unknown]
